FAERS Safety Report 5940943-0 (Version None)
Quarter: 2008Q4

REPORT INFORMATION
  Report Type: 
  Country: None (occurrence: None)
  Receive Date: 20081104
  Receipt Date: 20081024
  Transmission Date: 20090506
  Serious: Yes (Death, Life-Threatening, Hospitalization)
  Sender: FDA-Public Use
  Company Number: US-ELI_LILLY_AND_COMPANY-US200810005401

PATIENT
  Age: 60 Year
  Sex: Female
  Weight: 89.342 kg

DRUGS (1)
  1. BYETTA [Suspect]
     Dosage: 5 UG, 2/D
     Route: 058
     Dates: start: 20071101, end: 20080813

REACTIONS (1)
  - PANCREATIC CARCINOMA METASTATIC [None]
